FAERS Safety Report 10167631 (Version 3)
Quarter: 2023Q4

REPORT INFORMATION
  Report Type: Report from Study
  Country: KH (occurrence: KH)
  Receive Date: 20140512
  Receipt Date: 20231121
  Transmission Date: 20240109
  Serious: Yes (Life-Threatening, Disabling)
  Sender: FDA-Public Use
  Company Number: KH-BRISTOL-MYERS SQUIBB COMPANY-20721361

PATIENT

DRUGS (7)
  1. EFAVIRENZ [Suspect]
     Active Substance: EFAVIRENZ
     Indication: HIV infection
     Route: 048
  2. STAVUDINE [Concomitant]
     Active Substance: STAVUDINE
     Indication: Antiretroviral therapy
     Dosage: 30 MG, BID
  3. RIFAMPIN [Concomitant]
     Active Substance: RIFAMPIN
     Indication: Tuberculosis
     Dosage: 1DF:8-10 MG/KG/DAY
  4. ISONIAZID [Concomitant]
     Active Substance: ISONIAZID
     Indication: Tuberculosis
     Dosage: 1DF:4-5 MG/KG/DAY
  5. ETHAMBUTOL HYDROCHLORIDE [Concomitant]
     Active Substance: ETHAMBUTOL HYDROCHLORIDE
     Indication: Tuberculosis
     Dosage: 1DF:15-20 MG/KG/DAY
  6. PYRAZINAMIDE [Concomitant]
     Active Substance: PYRAZINAMIDE
     Indication: Tuberculosis
     Dosage: 1DF:20-30 MG/KG/DAY
  7. LAMIVUDINE [Concomitant]
     Active Substance: LAMIVUDINE
     Indication: Antiretroviral therapy
     Dosage: 150 MG, UNK

REACTIONS (1)
  - Insomnia [Unknown]
